FAERS Safety Report 10162869 (Version 4)
Quarter: 2014Q2

REPORT INFORMATION
  Report Type: Spontaneous
  Country: GB (occurrence: GB)
  Receive Date: 20140509
  Receipt Date: 20140601
  Transmission Date: 20141212
  Serious: Yes (Other)
  Sender: FDA-Public Use
  Company Number: PHFR2014GB003339

PATIENT
  Age: 37 Year
  Sex: Female

DRUGS (1)
  1. CLOZARIL [Suspect]
     Indication: SCHIZOPHRENIA
     Dosage: UNK
     Route: 048
     Dates: start: 20140505, end: 20140523

REACTIONS (4)
  - Haemoglobin decreased [Not Recovered/Not Resolved]
  - Pneumonia [Unknown]
  - White blood cell count increased [Unknown]
  - Malaise [Unknown]
